FAERS Safety Report 18624258 (Version 1)
Quarter: 2020Q4

REPORT INFORMATION
  Report Type: Spontaneous
  Country: GB (occurrence: GB)
  Receive Date: 20201216
  Receipt Date: 20201216
  Transmission Date: 20210114
  Serious: Yes (Death, Other)
  Sender: FDA-Public Use
  Company Number: GB-ASTRAZENECA-2020SF68398

PATIENT
  Sex: Male

DRUGS (1)
  1. BYDUREON [Suspect]
     Active Substance: EXENATIDE
     Route: 065
     Dates: start: 2014

REACTIONS (4)
  - Pancreatitis [Unknown]
  - Multiple organ dysfunction syndrome [Unknown]
  - Product prescribing error [Unknown]
  - Death [Fatal]
